FAERS Safety Report 9066034 (Version 1)
Quarter: 2013Q1

REPORT INFORMATION
  Report Type: Spontaneous
  Country: US (occurrence: US)
  Receive Date: 20130214
  Receipt Date: 20130214
  Transmission Date: 20140127
  Serious: Yes (Hospitalization, Other)
  Sender: FDA-Public Use
  Company Number: US-SANOFI-AVENTIS-2013SA013079

PATIENT
  Age: 10 Year
  Sex: Male

DRUGS (1)
  1. ALLEGRA [Suspect]
     Indication: HYPERSENSITIVITY
     Dosage: MORNING AND EVENING
     Route: 048
     Dates: start: 2011

REACTIONS (3)
  - Mood altered [Recovered/Resolved]
  - Bronchitis [Unknown]
  - Drug prescribing error [Unknown]
